FAERS Safety Report 13647762 (Version 1)
Quarter: 2017Q2

REPORT INFORMATION
  Report Type: Spontaneous
  Country: FR (occurrence: FR)
  Receive Date: 20170613
  Receipt Date: 20170613
  Transmission Date: 20170830
  Serious: Yes (Hospitalization)
  Sender: FDA-Public Use
  Company Number: FR-PFIZER INC-2017250690

PATIENT
  Age: 70 Year
  Sex: Male

DRUGS (11)
  1. DOCETAXEL HOSPIRA [Suspect]
     Active Substance: DOCETAXEL
     Dosage: 135.75 MG, UNK
     Dates: start: 20170126
  2. DOCETAXEL HOSPIRA [Suspect]
     Active Substance: DOCETAXEL
     Dosage: 139.35 MG, IN 1 HOUR
     Route: 042
     Dates: start: 20170216, end: 20170216
  3. SOLU-MEDROL [Suspect]
     Active Substance: METHYLPREDNISOLONE SODIUM SUCCINATE
     Indication: PREMEDICATION
     Dosage: 75 MG, DAILY
     Route: 042
     Dates: start: 20170216, end: 20170216
  4. EPREX [Concomitant]
     Active Substance: ERYTHROPOIETIN
     Dosage: UNK
  5. NEBIVOLOL. [Concomitant]
     Active Substance: NEBIVOLOL
     Dosage: UNK
  6. BRILIQUE [Concomitant]
     Active Substance: TICAGRELOR
     Dosage: UNK
  7. DOCETAXEL HOSPIRA [Suspect]
     Active Substance: DOCETAXEL
     Dosage: 138.75 MG, UNK
     Dates: start: 20170105
  8. ZOPHREN [Suspect]
     Active Substance: ONDANSETRON
     Indication: PREMEDICATION
     Dosage: 1 DF, DAILY
     Route: 042
     Dates: start: 20170216, end: 20170216
  9. HYZAAR [Concomitant]
     Active Substance: HYDROCHLOROTHIAZIDE\LOSARTAN POTASSIUM
     Dosage: UNK
  10. PRAVASTATIN. [Concomitant]
     Active Substance: PRAVASTATIN
     Dosage: UNK
  11. DOCETAXEL HOSPIRA [Suspect]
     Active Substance: DOCETAXEL
     Indication: LUNG NEOPLASM MALIGNANT
     Dosage: 140 MG, UNK
     Dates: start: 20161215

REACTIONS (3)
  - Vomiting [Recovered/Resolved]
  - Diarrhoea [Recovered/Resolved]
  - Nausea [Recovered/Resolved]

NARRATIVE: CASE EVENT DATE: 20170224
